FAERS Safety Report 21341170 (Version 2)
Quarter: 2022Q4

REPORT INFORMATION
  Report Type: Report from Study
  Country: CA (occurrence: CA)
  Receive Date: 20220916
  Receipt Date: 20221026
  Transmission Date: 20230113
  Serious: Yes (Death)
  Sender: FDA-Public Use
  Company Number: CA-BAYER-2022A128650

PATIENT
  Sex: Female

DRUGS (1)
  1. EYLEA [Suspect]
     Active Substance: AFLIBERCEPT
     Indication: Age-related macular degeneration
     Dosage: UNK; SOLUTION FOR INJECTION; 40 MG/ML
     Dates: start: 20210811

REACTIONS (1)
  - Death [Fatal]
